FAERS Safety Report 5158259-1 (Version None)
Quarter: 2006Q4

REPORT INFORMATION
  Report Type: 
  Country: None (occurrence: None)
  Receive Date: 20061117
  Receipt Date: 20061109
  Transmission Date: 20070319
  Serious: Yes (Other)
  Sender: FDA-Public Use
  Company Number: CAWYE344626OCT06

PATIENT
  Age: 52 Year
  Sex: Female

DRUGS (4)
  1. EFFEXOR XR [Suspect]
     Indication: ANXIETY
     Dosage: 37.5 MG 1X PER 1 DAY, ORAL
     Route: 048
     Dates: start: 20061025, end: 20061026
  2. EFFEXOR XR [Suspect]
     Indication: BLOOD PRESSURE MANAGEMENT
     Dosage: 37.5 MG 1X PER 1 DAY, ORAL
     Route: 048
     Dates: start: 20061025, end: 20061026
  3. ALPRAZOLAM [Concomitant]
  4. ALESSE-28 (LEVONORGESTREL/ETHINYL ESTRADIOL/INERT) [Concomitant]

REACTIONS (7)
  - ABASIA [None]
  - CEREBRAL PALSY [None]
  - CONDITION AGGRAVATED [None]
  - INSOMNIA [None]
  - MUSCLE SPASMS [None]
  - MUSCULOSKELETAL STIFFNESS [None]
  - NERVOUSNESS [None]
